FAERS Safety Report 4465062-4 (Version None)
Quarter: 2004Q3

REPORT INFORMATION
  Report Type: 
  Country: None (occurrence: None)
  Receive Date: 20040928
  Receipt Date: 20040928
  Transmission Date: 20050211
  Serious: Yes (Hospitalization)
  Sender: FDA-Public Use
  Company Number: None

PATIENT
  Age: 6 Year
  Sex: Male

DRUGS (2)
  1. TOPAMAX [Suspect]
     Indication: IMPULSE-CONTROL DISORDER
     Dates: start: 20040813
  2. TOPAMAX [Suspect]
     Indication: IMPULSE-CONTROL DISORDER
     Dates: start: 20040814

REACTIONS (2)
  - BURNING SENSATION [None]
  - FORMICATION [None]
